FAERS Safety Report 4684086-5 (Version None)
Quarter: 2005Q2

REPORT INFORMATION
  Report Type: 
  Country: None (occurrence: None)
  Receive Date: 20050531
  Receipt Date: 20050401
  Transmission Date: 20051028
  Serious: Yes (Hospitalization)
  Sender: FDA-Public Use
  Company Number: US_0410106499

PATIENT
  Age: 33 Year
  Sex: Male
  Weight: 82 kg

DRUGS (11)
  1. ZYPREXA [Suspect]
     Dosage: 30 MG DAY
     Dates: start: 20040321, end: 20040510
  2. CATAPRES [Concomitant]
  3. VALIUM [Concomitant]
  4. ATIVAN [Concomitant]
  5. BENADRYL [Concomitant]
  6. HALDOL (HALOPERIDOL DECANOATE) [Concomitant]
  7. TORADOL [Concomitant]
  8. ROBITUSSIN [Concomitant]
  9. M.V.I. [Concomitant]
  10. THIAMINE [Concomitant]
  11. FOLIC ACID [Concomitant]

REACTIONS (8)
  - BACK PAIN [None]
  - BLOOD GLUCOSE INCREASED [None]
  - DIABETES MELLITUS [None]
  - GASTROINTESTINAL DISORDER [None]
  - PAIN [None]
  - PRESCRIBED OVERDOSE [None]
  - TREMOR [None]
  - VISION BLURRED [None]
